APPROVED DRUG PRODUCT: MINOCIN
Active Ingredient: MINOCYCLINE HYDROCHLORIDE
Strength: EQ 50MG BASE
Dosage Form/Route: CAPSULE;ORAL
Application: N050649 | Product #001 | TE Code: AB
Applicant: BAUSCH HEALTH US LLC
Approved: May 31, 1990 | RLD: Yes | RS: No | Type: RX